FAERS Safety Report 5585262-X (Version None)
Quarter: 2008Q1

REPORT INFORMATION
  Report Type: 
  Country: None (occurrence: None)
  Receive Date: 20080108
  Receipt Date: 20080108
  Transmission Date: 20080703
  Serious: Yes (Other)
  Sender: FDA-Public Use
  Company Number: None

PATIENT
  Age: 43 Year
  Sex: Female

DRUGS (1)
  1. ANTABUSE [Suspect]
     Dates: start: 20070509, end: 20070620

REACTIONS (4)
  - HEPATIC INFILTRATION EOSINOPHILIC [None]
  - HEPATITIS ACUTE [None]
  - HEPATOCELLULAR INJURY [None]
  - LIVER INJURY [None]
